FAERS Safety Report 18597182 (Version 1)
Quarter: 2020Q4

REPORT INFORMATION
  Report Type: Spontaneous
  Country: US (occurrence: US)
  Receive Date: 20201209
  Receipt Date: 20201209
  Transmission Date: 20210114
  Serious: Yes (Hospitalization)
  Sender: FDA-Public Use
  Company Number: US-SA-2020SA351674

PATIENT

DRUGS (11)
  1. ATORVASTATIN [Concomitant]
     Active Substance: ATORVASTATIN
  2. AMLODIPINE [Concomitant]
     Active Substance: AMLODIPINE BESYLATE
  3. VITAMIN D [VITAMIN D NOS] [Concomitant]
     Active Substance: VITAMIN D NOS
  4. IRBESARTAN. [Concomitant]
     Active Substance: IRBESARTAN
  5. LEVOTHYROXINE. [Concomitant]
     Active Substance: LEVOTHYROXINE
  6. BABY ASPIRIN [Concomitant]
     Active Substance: ASPIRIN
  7. EZETIMIBE. [Concomitant]
     Active Substance: EZETIMIBE
  8. PLAVIX [Suspect]
     Active Substance: CLOPIDOGREL BISULFATE
     Indication: SURGERY
     Dosage: UNK UNK, QD
     Route: 048
     Dates: start: 2001, end: 2013
  9. AMITRIPTYLINE [Concomitant]
     Active Substance: AMITRIPTYLINE
  10. METOPROLOL. [Concomitant]
     Active Substance: METOPROLOL
  11. INSULIN [Concomitant]
     Active Substance: INSULIN NOS

REACTIONS (4)
  - Atrial fibrillation [Unknown]
  - Road traffic accident [Unknown]
  - Nephrolithiasis [Unknown]
  - Aggression [Unknown]

NARRATIVE: CASE EVENT DATE: 2005
